FAERS Safety Report 11311302 (Version 3)
Quarter: 2015Q3

REPORT INFORMATION
  Report Type: Spontaneous
  Country: CN (occurrence: CN)
  Receive Date: 20150727
  Receipt Date: 20150828
  Transmission Date: 20151125
  Serious: Yes (Death, Hospitalization, Other)
  Sender: FDA-Public Use
  Company Number: CN-ROCHE-1611655

PATIENT
  Age: 45 Year
  Sex: Female

DRUGS (1)
  1. XELODA [Suspect]
     Active Substance: CAPECITABINE
     Indication: BREAST CANCER
     Dosage: 4 TABLETS IN MORNING, 4 TABLETS IN EVENING
     Route: 048
     Dates: start: 20150710

REACTIONS (12)
  - Shock haemorrhagic [Fatal]
  - Coma [Unknown]
  - Shock [Fatal]
  - Platelet count decreased [Unknown]
  - Melaena [Unknown]
  - Bone marrow failure [Fatal]
  - Perineal ulceration [Unknown]
  - Drug hypersensitivity [Unknown]
  - Septic shock [Fatal]
  - Mouth ulceration [Unknown]
  - Hypotension [Unknown]
  - White blood cell count decreased [Unknown]

NARRATIVE: CASE EVENT DATE: 20150722
